FAERS Safety Report 5678352-4 (Version None)
Quarter: 2008Q1

REPORT INFORMATION
  Report Type: 
  Country: None (occurrence: None)
  Receive Date: 20080320
  Receipt Date: 20080304
  Transmission Date: 20080703
  Serious: Yes (Hospitalization)
  Sender: FDA-Public Use
  Company Number: 015#3#2008-00005

PATIENT
  Age: 73 Year
  Sex: Female

DRUGS (7)
  1. NEUPRO [Suspect]
     Indication: PARKINSON'S DISEASE
     Dosage: 6 MG/24H TRANSDERMAL
     Route: 062
     Dates: start: 20071112, end: 20080208
  2. SIMVASTATIN [Suspect]
     Indication: HYPERLIPIDAEMIA
     Dosage: 20 MG (20 MG 1 IN 1 DAY (S)) ORAL
     Route: 048
     Dates: start: 20030101, end: 20080208
  3. STALEVO 100 (CARBIDOPA, LEVODOPA) [Concomitant]
  4. ZOLPIDEM [Concomitant]
  5. TIROXINA (LEVOTHYROXINE SODIUM) [Concomitant]
  6. OMEPRAZOLE [Concomitant]
  7. ALENDRONATE CALCIUM [Concomitant]

REACTIONS (1)
  - HEPATITIS CHOLESTATIC [None]
